FAERS Safety Report 14980322 (Version 1)
Quarter: 2018Q2

REPORT INFORMATION
  Report Type: Spontaneous
  Country: US (occurrence: US)
  Receive Date: 20180606
  Receipt Date: 20180606
  Transmission Date: 20180711
  Serious: Yes (Hospitalization)
  Sender: FDA-Public Use
  Company Number: US-ASTRAZENECA-2018SE71493

PATIENT
  Sex: Female
  Weight: 63.5 kg

DRUGS (12)
  1. FLORASTOR PROBIOTIC [Concomitant]
     Indication: PROPHYLAXIS
     Dosage: TWO TIMES A DAY
     Route: 050
  2. SIMVASTATIN. [Concomitant]
     Active Substance: SIMVASTATIN
     Route: 050
  3. NEXIUM 24HR [Suspect]
     Active Substance: ESOMEPRAZOLE MAGNESIUM
     Dosage: DAILY
     Route: 048
  4. CLONIDINE. [Concomitant]
     Active Substance: CLONIDINE
     Indication: BLOOD PRESSURE MEASUREMENT
     Dosage: UNKNOWN
     Route: 050
  5. FLONASE SPRAY [Concomitant]
     Dosage: TWO TIMES A DAY
     Route: 045
  6. NEXIUM [Suspect]
     Active Substance: ESOMEPRAZOLE MAGNESIUM
     Route: 048
  7. METOPROLOL TARTRATE. [Suspect]
     Active Substance: METOPROLOL TARTRATE
     Indication: BLOOD PRESSURE MEASUREMENT
     Route: 048
  8. IRON [Concomitant]
     Active Substance: IRON
     Indication: MULTI-VITAMIN DEFICIENCY
     Dosage: DAILY
     Route: 050
  9. 2 CAL HN CANS [Concomitant]
     Indication: ADVERSE FOOD REACTION
     Dosage: FOUR TIMES A DAY
     Route: 050
  10. FOLIC ACID. [Concomitant]
     Active Substance: FOLIC ACID
     Indication: MULTI-VITAMIN DEFICIENCY
     Dosage: DAILY
     Route: 050
  11. VITAMIN C [Concomitant]
     Active Substance: ASCORBIC ACID
     Indication: MULTI-VITAMIN DEFICIENCY
     Dosage: DAILY
     Route: 050
  12. RESTASIS [Concomitant]
     Active Substance: CYCLOSPORINE
     Dosage: TWO TIMES A DAY
     Route: 065

REACTIONS (11)
  - Arthritis [Not Recovered/Not Resolved]
  - Posture abnormal [Not Recovered/Not Resolved]
  - Infection [Unknown]
  - Pneumonia aspiration [Unknown]
  - Gastrooesophageal reflux disease [Unknown]
  - Thyroid function test abnormal [Unknown]
  - Circumstance or information capable of leading to medication error [Recovered/Resolved]
  - Sjogren^s syndrome [Unknown]
  - Pleural effusion [Unknown]
  - Body height decreased [Not Recovered/Not Resolved]
  - Hiatus hernia [Unknown]
